FAERS Safety Report 15354885 (Version 1)
Quarter: 2018Q3

REPORT INFORMATION
  Report Type: Spontaneous
  Country: US (occurrence: US)
  Receive Date: 20180829
  Receipt Date: 20180829
  Transmission Date: 20181010
  Serious: No
  Sender: FDA-Public Use
  Company Number: None

PATIENT
  Sex: Male

DRUGS (1)
  1. ATAZANAVIR 300 MG TEVA [Suspect]
     Active Substance: ATAZANAVIR
     Indication: HIV INFECTION
     Route: 048
     Dates: start: 20081014

REACTIONS (4)
  - Feeling of body temperature change [None]
  - Product substitution issue [None]
  - Acne [None]
  - Fatigue [None]
